FAERS Safety Report 6236869-8 (Version None)
Quarter: 2009Q2

REPORT INFORMATION
  Report Type: 
  Country: None (occurrence: None)
  Receive Date: 20090619
  Receipt Date: 20090611
  Transmission Date: 20091009
  Serious: Yes (Death, Hospitalization)
  Sender: FDA-Public Use
  Company Number: JP-ABBOTT-09P-087-0570155-00

PATIENT
  Sex: Female
  Weight: 50.5 kg

DRUGS (23)
  1. HUMIRA [Suspect]
     Indication: RHEUMATOID ARTHRITIS
     Route: 058
     Dates: start: 20080813, end: 20090311
  2. METHOTREXATE [Suspect]
     Indication: RHEUMATOID ARTHRITIS
     Dates: start: 20080911, end: 20081021
  3. METHOTREXATE [Suspect]
     Dates: start: 20081022, end: 20090425
  4. PREDNISOLONE [Concomitant]
     Indication: RHEUMATOID ARTHRITIS
     Dates: end: 20080910
  5. PREDNISOLONE [Concomitant]
     Dates: start: 20080911, end: 20081104
  6. PREDNISOLONE [Concomitant]
     Dates: start: 20081105, end: 20081118
  7. PREDNISOLONE [Concomitant]
     Dates: start: 20081119, end: 20081202
  8. PREDNISOLONE [Concomitant]
     Dates: start: 20081203, end: 20090113
  9. PREDNISOLONE [Concomitant]
     Dates: start: 20090114, end: 20090425
  10. RABEPRAZOLE SODIUM [Concomitant]
     Indication: DRUG USE FOR UNKNOWN INDICATION
  11. NIFEDIPINE [Concomitant]
     Indication: HYPERTENSION
     Dates: end: 20090425
  12. AZOSEMIDE [Concomitant]
     Indication: HYPERTENSION
     Dates: end: 20090425
  13. POLAPREZINC [Concomitant]
     Indication: GASTROINTESTINAL DISORDER
     Dates: start: 20090414, end: 20090425
  14. ALENDRONATE HYDRATE SODIUM [Concomitant]
     Indication: OSTEOPOROSIS
     Dates: end: 20090425
  15. KETOPROFEN [Concomitant]
     Indication: ANALGESIA
     Dates: end: 20090425
  16. VOGLIBOSE [Concomitant]
     Indication: DIABETES MELLITUS
     Dates: end: 20090425
  17. FOLIC ACID [Concomitant]
     Indication: PROPHYLAXIS
     Dates: end: 20090425
  18. FOLIC ACID [Concomitant]
     Indication: ADVERSE EVENT
  19. SALAZOSULFAPYRIDINE [Concomitant]
     Indication: RHEUMATOID ARTHRITIS
     Dates: start: 20080122, end: 20080910
  20. REBAMIPIDE [Concomitant]
     Indication: GASTROINTESTINAL DISORDER
     Dates: end: 20090413
  21. DICLOFENAC SODIUM [Concomitant]
     Indication: ANTIINFLAMMATORY THERAPY
     Route: 054
     Dates: end: 20090525
  22. LANSOPRAZOLE [Concomitant]
     Indication: GASTROINTESTINAL DISORDER
     Dates: end: 20090413
  23. RABEPRAZOLE SODIUM [Concomitant]
     Indication: GASTROINTESTINAL DISORDER
     Dates: start: 20090414, end: 20090425

REACTIONS (3)
  - GASTRIC CANCER [None]
  - INTERSTITIAL LUNG DISEASE [None]
  - RESPIRATORY FAILURE [None]
